FAERS Safety Report 25343188 (Version 1)
Quarter: 2025Q2

REPORT INFORMATION
  Report Type: Spontaneous
  Country: AT (occurrence: AT)
  Receive Date: 20250521
  Receipt Date: 20250521
  Transmission Date: 20250717
  Serious: Yes (Other)
  Sender: BAUSCH AND LOMB
  Company Number: AT-Merck Healthcare KGaA-2025023901

PATIENT
  Age: 62 Year
  Sex: Male

DRUGS (1)
  1. DEXAMETHASONE [Suspect]
     Active Substance: DEXAMETHASONE
     Indication: Asthma
     Route: 065

REACTIONS (6)
  - Surgery [Unknown]
  - Adrenal insufficiency [Unknown]
  - Diabetes mellitus [Recovered/Resolved]
  - Contusion [Unknown]
  - General physical health deterioration [Unknown]
  - Rhinorrhoea [Recovered/Resolved]
